FAERS Safety Report 5766974-1 (Version None)
Quarter: 2008Q2

REPORT INFORMATION
  Report Type: 
  Country: None (occurrence: None)
  Receive Date: 20080612
  Receipt Date: 20080603
  Transmission Date: 20081010
  Serious: Yes (Other)
  Sender: FDA-Public Use
  Company Number: JO-WATSON-2008-03044

PATIENT
  Age: 26 Year
  Sex: Female

DRUGS (1)
  1. TRELSTAR DEPOT (WITH CLIP'N'JECT) (WATSON LABORATORIES) [Suspect]
     Indication: INFERTILITY
     Dosage: 3.75 MG, DAY 21 OF MENSTRUAL CYCLE, ONCE
     Route: 030

REACTIONS (1)
  - OVARIAN HYPERSTIMULATION SYNDROME [None]
